FAERS Safety Report 11956896 (Version 1)
Quarter: 2016Q1

REPORT INFORMATION
  Report Type: Report from Study
  Country: US (occurrence: US)
  Receive Date: 20160126
  Receipt Date: 20160126
  Transmission Date: 20160526
  Serious: No
  Sender: FDA-Public Use
  Company Number: US-ABBVIE-15K-163-1348978-00

PATIENT
  Age: 22 Year
  Sex: Female

DRUGS (1)
  1. HUMIRA [Suspect]
     Active Substance: ADALIMUMAB
     Indication: RHEUMATOID ARTHRITIS
     Route: 065
     Dates: start: 20140523

REACTIONS (7)
  - Fatigue [Recovering/Resolving]
  - Malaise [Recovering/Resolving]
  - Abasia [Recovering/Resolving]
  - Joint lock [Recovering/Resolving]
  - Muscle spasms [Recovered/Resolved]
  - Tremor [Recovering/Resolving]
  - Asthenia [Recovering/Resolving]

NARRATIVE: CASE EVENT DATE: 20150212
